FAERS Safety Report 18860127 (Version 7)
Quarter: 2021Q3

REPORT INFORMATION
  Report Type: Report from Study
  Country: US (occurrence: US)
  Receive Date: 20210208
  Receipt Date: 20210805
  Transmission Date: 20211014
  Serious: Yes (Other)
  Sender: FDA-Public Use
  Company Number: US-GLAXOSMITHKLINE-US2020AMR257616

PATIENT
  Age: 83 Year
  Sex: Female

DRUGS (1)
  1. BELANTAMAB MAFODOTIN. [Suspect]
     Active Substance: BELANTAMAB MAFODOTIN
     Indication: PRODUCT USED FOR UNKNOWN INDICATION
     Dosage: UNK

REACTIONS (8)
  - Macular degeneration [Unknown]
  - Corneal degeneration [Unknown]
  - Dry eye [Unknown]
  - Platelet count decreased [Unknown]
  - Visual acuity reduced [Recovered/Resolved]
  - Night blindness [Unknown]
  - Laboratory test abnormal [Unknown]
  - Keratopathy [Recovered/Resolved]

NARRATIVE: CASE EVENT DATE: 20210119
